FAERS Safety Report 4325316-9 (Version None)
Quarter: 2004Q1

REPORT INFORMATION
  Report Type: 
  Country: None (occurrence: None)
  Receive Date: 20040326
  Receipt Date: 20040326
  Transmission Date: 20041129
  Serious: Yes (Hospitalization)
  Sender: FDA-Public Use
  Company Number: None

PATIENT
  Age: 59 Year
  Sex: Female

DRUGS (2)
  1. AZATHIOPRINE [Suspect]
  2. FLUCONAZOLE [Suspect]

REACTIONS (13)
  - ABDOMINAL PAIN UPPER [None]
  - ALANINE AMINOTRANSFERASE INCREASED [None]
  - ASPARTATE AMINOTRANSFERASE INCREASED [None]
  - BIOPSY LIVER ABNORMAL [None]
  - BLOOD ALKALINE PHOSPHATASE INCREASED [None]
  - BLOOD BILIRUBIN INCREASED [None]
  - CHOLESTASIS [None]
  - FAECES PALE [None]
  - HEPATIC STEATOSIS [None]
  - HEPATITIS [None]
  - INJURY [None]
  - JAUNDICE [None]
  - PRURITUS [None]
